FAERS Safety Report 12186708 (Version 2)
Quarter: 2016Q2

REPORT INFORMATION
  Report Type: Spontaneous
  Country: JP (occurrence: JP)
  Receive Date: 20160317
  Receipt Date: 20160419
  Transmission Date: 20160815
  Serious: Yes (Other)
  Sender: FDA-Public Use
  Company Number: JP-MYLANLABS-2016M1010863

PATIENT

DRUGS (18)
  1. PARAPLATIN [Suspect]
     Active Substance: CARBOPLATIN
     Indication: METASTASES TO LUNG
     Dosage: HI-MEC
     Route: 041
  2. PIRARUBICIN [Suspect]
     Active Substance: PIRARUBICIN
     Indication: METASTASES TO LYMPH NODES
  3. CISPLATIN. [Suspect]
     Active Substance: CISPLATIN
     Indication: METASTASES TO LUNG
  4. PARAPLATIN [Suspect]
     Active Substance: CARBOPLATIN
     Indication: HEPATOBLASTOMA
     Dosage: ITEC 1COURSE
     Route: 041
  5. PIRARUBICIN [Suspect]
     Active Substance: PIRARUBICIN
     Indication: METASTASES TO LUNG
     Dosage: ITEC 1 COURSE
     Route: 041
  6. ALKERAN [Suspect]
     Active Substance: MELPHALAN
     Indication: METASTASES TO LYMPH NODES
  7. ETOPOSIDE. [Suspect]
     Active Substance: ETOPOSIDE
     Indication: HEPATOBLASTOMA
     Dosage: ITEC 1COURSE
     Route: 041
  8. ETOPOSIDE. [Suspect]
     Active Substance: ETOPOSIDE
     Indication: METASTASES TO LUNG
     Dosage: HI-MEC
     Route: 041
  9. IFOMIDE [Suspect]
     Active Substance: IFOSFAMIDE
     Indication: HEPATOBLASTOMA
     Dosage: ITEC 1COURSE
     Route: 041
  10. PIRARUBICIN [Suspect]
     Active Substance: PIRARUBICIN
     Indication: HEPATOBLASTOMA
     Dosage: CITA 2 COURSE
     Route: 041
  11. CISPLATIN. [Suspect]
     Active Substance: CISPLATIN
     Indication: METASTASES TO LYMPH NODES
  12. IFOMIDE [Suspect]
     Active Substance: IFOSFAMIDE
     Indication: METASTASES TO LUNG
  13. ALKERAN [Suspect]
     Active Substance: MELPHALAN
     Indication: HEPATOBLASTOMA
     Dosage: HI-MEC
     Route: 041
  14. CISPLATIN. [Suspect]
     Active Substance: CISPLATIN
     Indication: HEPATOBLASTOMA
     Dosage: CITA 2COURSE
     Route: 041
  15. PARAPLATIN [Suspect]
     Active Substance: CARBOPLATIN
     Indication: METASTASES TO LYMPH NODES
  16. IFOMIDE [Suspect]
     Active Substance: IFOSFAMIDE
     Indication: METASTASES TO LYMPH NODES
  17. ALKERAN [Suspect]
     Active Substance: MELPHALAN
     Indication: METASTASES TO LUNG
  18. ETOPOSIDE. [Suspect]
     Active Substance: ETOPOSIDE
     Indication: METASTASES TO LYMPH NODES

REACTIONS (1)
  - Deafness [Unknown]
